FAERS Safety Report 5705255-9 (Version None)
Quarter: 2008Q2

REPORT INFORMATION
  Report Type: 
  Country: None (occurrence: None)
  Receive Date: 20080411
  Receipt Date: 20070716
  Transmission Date: 20081010
  Serious: Yes (Hospitalization)
  Sender: FDA-Public Use
  Company Number: 2007RR-13271

PATIENT
  Age: 23 Year
  Sex: Female

DRUGS (3)
  1. SERTRALINE HCL [Suspect]
     Indication: DEPRESSION
  2. ACETAMINOPHEN [Concomitant]
  3. AMITRYPTILINE (AMITRYPTILINE) [Concomitant]

REACTIONS (4)
  - CHILLS [None]
  - HEADACHE [None]
  - HEPATITIS [None]
  - HEPATOTOXICITY [None]
